FAERS Safety Report 9565870 (Version 1)
Quarter: 2013Q3

REPORT INFORMATION
  Report Type: Spontaneous
  Country: US (occurrence: US)
  Receive Date: 20130930
  Receipt Date: 20130930
  Transmission Date: 20140515
  Serious: No
  Sender: FDA-Public Use
  Company Number: US-PFIZER INC-2013280432

PATIENT
  Sex: Female

DRUGS (1)
  1. LYRICA [Suspect]
     Dosage: UNK

REACTIONS (5)
  - Hyperhidrosis [Unknown]
  - Body temperature increased [Unknown]
  - Balance disorder [Unknown]
  - Feeling abnormal [Unknown]
  - Oedema peripheral [Unknown]
